FAERS Safety Report 20131269 (Version 1)
Quarter: 2021Q4

REPORT INFORMATION
  Report Type: Spontaneous
  Country: GR (occurrence: GR)
  Receive Date: 20211130
  Receipt Date: 20211130
  Transmission Date: 20220303
  Serious: Yes (Other)
  Sender: FDA-Public Use
  Company Number: GR-VERTEX PHARMACEUTICALS-2021-018615

PATIENT
  Age: 45 Year
  Sex: Male

DRUGS (1)
  1. ELEXACAFTOR\IVACAFTOR\TEZACAFTOR [Suspect]
     Active Substance: ELEXACAFTOR\IVACAFTOR\TEZACAFTOR
     Indication: Cystic fibrosis
     Dosage: 1 TABLET IN THE AM AT REDUCED DOSE
     Route: 048
     Dates: start: 20210806

REACTIONS (2)
  - Renal failure [Unknown]
  - IgA nephropathy [Unknown]
